FAERS Safety Report 5169666-5 (Version None)
Quarter: 2006Q4

REPORT INFORMATION
  Report Type: 
  Country: None (occurrence: None)
  Receive Date: 20061212
  Receipt Date: 20061128
  Transmission Date: 20070319
  Serious: Yes (Hospitalization)
  Sender: FDA-Public Use
  Company Number: 2006AP05635

PATIENT
  Age: 21763 Day
  Sex: Male
  Weight: 64 kg

DRUGS (1)
  1. IRESSA [Suspect]
     Indication: NEOPLASM
     Route: 048
     Dates: start: 20060612

REACTIONS (1)
  - CEREBRAL INFARCTION [None]
